FAERS Safety Report 9249561 (Version 4)
Quarter: 2014Q4

REPORT INFORMATION
  Report Type: Spontaneous
  Country: US (occurrence: US)
  Receive Date: 20130423
  Receipt Date: 20141111
  Transmission Date: 20150529
  Serious: Yes (Other)
  Sender: FDA-Public Use
  Company Number: US-JNJFOC-20130410101

PATIENT
  Age: 14 Month
  Sex: Male
  Weight: 9.98 kg

DRUGS (4)
  1. TYLENOL [Suspect]
     Active Substance: ACETAMINOPHEN
     Indication: TEETHING
     Dosage: 1.2- 1.875 ML
     Route: 048
     Dates: start: 20121101, end: 20130412
  2. TYLENOL [Suspect]
     Active Substance: ACETAMINOPHEN
     Route: 048
  3. MOTRIN [Suspect]
     Active Substance: IBUPROFEN
     Indication: TEETHING
     Dosage: 1.2- 1.875 ML
     Route: 048
     Dates: start: 20121101, end: 20130412
  4. MOTRIN [Suspect]
     Active Substance: IBUPROFEN
     Route: 048

REACTIONS (1)
  - Eczema [Unknown]

NARRATIVE: CASE EVENT DATE: 20121110
